FAERS Safety Report 7987507-5 (Version None)
Quarter: 2011Q4

REPORT INFORMATION
  Report Type: 
  Country: None (occurrence: None)
  Receive Date: 20111216
  Receipt Date: 20111209
  Transmission Date: 20120403
  Serious: Yes (Other)
  Sender: FDA-Public Use
  Company Number: PHEH2011US01846

PATIENT
  Sex: Male
  Weight: 29 kg

DRUGS (4)
  1. OXCARBAZEPINE [Suspect]
     Dosage: UNK UKN, UNK
  2. ZANTAC [Concomitant]
     Dosage: UNK UKN, UNK
  3. SINGULAIR [Concomitant]
     Dosage: UNK UKN, UNK
  4. PREVACID [Concomitant]
     Dosage: UNK UKN, UNK

REACTIONS (6)
  - ABASIA [None]
  - HEMIPLEGIA [None]
  - SENSORY LOSS [None]
  - ASTHENIA [None]
  - CONVULSION [None]
  - POSTICTAL PARALYSIS [None]
